FAERS Safety Report 19802198 (Version 1)
Quarter: 2021Q3

REPORT INFORMATION
  Report Type: Spontaneous
  Country: US (occurrence: US)
  Receive Date: 20210901
  Receipt Date: 20210901
  Transmission Date: 20211014
  Serious: No
  Sender: FDA-Public Use
  Company Number: None

PATIENT
  Sex: Female

DRUGS (1)
  1. XGEVA [Suspect]
     Active Substance: DENOSUMAB
     Dosage: ?          OTHER DOSE:120/1.7 MG/ML;OTHER FREQUENCY:ONCE EVERY 28 DAYS;?
     Route: 058

REACTIONS (1)
  - Coronavirus infection [None]
